FAERS Safety Report 7269182-0 (Version None)
Quarter: 2011Q1

REPORT INFORMATION
  Report Type: 
  Country: None (occurrence: None)
  Receive Date: 20110118
  Receipt Date: 20101212
  Transmission Date: 20110831
  Serious: Yes (Life-Threatening)
  Sender: FDA-Public Use
  Company Number: OMX-2010-00149

PATIENT
  Age: 45 Year
  Sex: Female

DRUGS (8)
  1. ROCURONIUM BROMIDE [Concomitant]
  2. FENTANYL [Concomitant]
  3. QUIXIL [Suspect]
     Indication: POST PROCEDURAL HAEMORRHAGE
  4. APPLICATOR [Suspect]
  5. PRESSURE REGULATOR (SPRAY (NOT INHALATION)) [Suspect]
     Dosage: (2-3 BARS)
  6. THIOPENTAL SODIUM [Concomitant]
  7. ISOFLURANE [Concomitant]
  8. BUPIVACAINE  (BUPIVACAINE) [Concomitant]

REACTIONS (12)
  - INTRACARDIAC THROMBUS [None]
  - HYPOTENSION [None]
  - LEFT VENTRICULAR FAILURE [None]
  - PCO2 INCREASED [None]
  - RIGHT VENTRICULAR FAILURE [None]
  - AIR EMBOLISM [None]
  - CENTRAL VENOUS PRESSURE INCREASED [None]
  - HEART RATE INCREASED [None]
  - BRADYCARDIA [None]
  - MEDICAL DEVICE COMPLICATION [None]
  - PO2 INCREASED [None]
  - END-TIDAL CO2 DECREASED [None]
